FAERS Safety Report 23652140 (Version 1)
Quarter: 2024Q1

REPORT INFORMATION
  Report Type: Spontaneous
  Country: US (occurrence: US)
  Receive Date: 20240320
  Receipt Date: 20240320
  Transmission Date: 20240410
  Serious: No
  Sender: FDA-Public Use
  Company Number: US-TEVA-VS-3138609

PATIENT

DRUGS (4)
  1. AJOVY [Suspect]
     Active Substance: FREMANEZUMAB-VFRM
     Dosage: MPID: 4326465
     Route: 065
     Dates: start: 2023
  2. AJOVY [Suspect]
     Active Substance: FREMANEZUMAB-VFRM
  3. UBRELVY [Suspect]
     Active Substance: UBROGEPANT
     Indication: Product used for unknown indication
     Route: 048
  4. NURTEC ODT [Suspect]
     Active Substance: RIMEGEPANT SULFATE
     Indication: Product used for unknown indication
     Dosage: MPID: 4537031
     Route: 065

REACTIONS (2)
  - Therapeutic product effect incomplete [Unknown]
  - Alopecia [Unknown]

NARRATIVE: CASE EVENT DATE: 20230101
